FAERS Safety Report 9685905 (Version 3)
Quarter: 2014Q2

REPORT INFORMATION
  Report Type: Report from Study
  Country: CA (occurrence: CA)
  Receive Date: 20131113
  Receipt Date: 20140625
  Transmission Date: 20141212
  Serious: Yes (Hospitalization, Other)
  Sender: FDA-Public Use
  Company Number: CA-JNJFOC-20131103031

PATIENT
  Age: 32 Year
  Sex: Female
  Weight: 69 kg

DRUGS (5)
  1. REMICADE [Suspect]
     Indication: ANKYLOSING SPONDYLITIS
     Route: 042
     Dates: start: 20100518, end: 20140211
  2. REMICADE [Suspect]
     Indication: ANKYLOSING SPONDYLITIS
     Route: 042
     Dates: start: 2014
  3. MODAFINIL [Concomitant]
     Route: 065
  4. TORADOL [Concomitant]
     Route: 065
  5. NAPROXEN [Concomitant]
     Route: 065

REACTIONS (4)
  - Scar [Recovered/Resolved]
  - Cystitis [Recovered/Resolved]
  - Fall [Unknown]
  - Head injury [Unknown]
